FAERS Safety Report 9886368 (Version 1)
Quarter: 2014Q1

REPORT INFORMATION
  Report Type: Spontaneous
  Country: CL (occurrence: CL)
  Receive Date: 20140210
  Receipt Date: 20140210
  Transmission Date: 20141002
  Serious: Yes (Other)
  Sender: FDA-Public Use
  Company Number: CL-PFIZER INC-2014035859

PATIENT
  Age: 71 Year
  Sex: Female

DRUGS (8)
  1. ALTRULINE [Suspect]
     Indication: MOOD ALTERED
     Dosage: UNK, ONCE A DAY IN THE MORNING
     Route: 048
     Dates: start: 2011
  2. INSULIN [Concomitant]
     Dosage: UNK
  3. PLANEX [Concomitant]
     Dosage: 75 MG, UNK
  4. CORDIAX [Concomitant]
     Dosage: 80 MG, 1X/DAY
  5. AMLODIPINE BESILATE [Concomitant]
     Dosage: 5 MG, 2X/DAY
  6. ESPIRONOLACTONA [Concomitant]
     Dosage: 25 MG, 1X/DAY
  7. ALPRAZOLAM [Concomitant]
     Dosage: UNK, 3X/DAY SOME TIMES
  8. CRONUS [Concomitant]
     Dosage: UNK

REACTIONS (6)
  - Deafness unilateral [Unknown]
  - Arterial disorder [Unknown]
  - Eyelid disorder [Not Recovered/Not Resolved]
  - Arteriosclerosis [Not Recovered/Not Resolved]
  - Osteoarthritis [Unknown]
  - Off label use [Unknown]
